FAERS Safety Report 9372529 (Version 1)
Quarter: 2013Q2

REPORT INFORMATION
  Report Type: Report from Study
  Country: US (occurrence: US)
  Receive Date: 20130627
  Receipt Date: 20130627
  Transmission Date: 20140414
  Serious: Yes (Death)
  Sender: FDA-Public Use
  Company Number: US-MYLANLABS-2013S1000593

PATIENT
  Age: 62 Year
  Sex: Male
  Weight: 81.65 kg

DRUGS (11)
  1. CLOZAPINE TABLETS [Suspect]
  2. AMOXICILLIN + CLAVULANIC ACID [Concomitant]
     Dosage: 500/125MG
     Dates: start: 20121205
  3. TRIPLE ANTIBIOTIC /00038301/ [Concomitant]
  4. CEPHALEXIN [Concomitant]
     Dates: start: 20121204
  5. SENNA [Concomitant]
  6. CLONAZEPAM [Concomitant]
  7. SORBITOL [Concomitant]
  8. VITAMIN [Concomitant]
  9. AMLODIPINE [Concomitant]
  10. GEODON [Concomitant]
  11. ASPIRIN [Concomitant]

REACTIONS (5)
  - Cardiac arrest [Fatal]
  - Osteomyelitis [Unknown]
  - Localised infection [Unknown]
  - Gastric dilatation [Unknown]
  - Vomiting [Unknown]
